FAERS Safety Report 11352688 (Version 1)
Quarter: 2015Q3

REPORT INFORMATION
  Report Type: Spontaneous
  Country: US (occurrence: US)
  Receive Date: 20150807
  Receipt Date: 20150807
  Transmission Date: 20151125
  Serious: No
  Sender: FDA-Public Use
  Company Number: US-JNJFOC-20150620649

PATIENT
  Sex: Male

DRUGS (2)
  1. MENS ROGAINE EXTRA STRENGTH [Suspect]
     Active Substance: MINOXIDIL
     Indication: PRODUCT USED FOR UNKNOWN INDICATION
     Dosage: 1X AT NIGHT, ONCE IN THE MORNING (2 TIMES) NOT VERY MUCH
     Route: 061
     Dates: start: 20150624, end: 20150625
  2. MENS ROGAINE EXTRA STRENGTH [Suspect]
     Active Substance: MINOXIDIL
     Route: 061

REACTIONS (3)
  - Dizziness [Unknown]
  - Drug administered at inappropriate site [Unknown]
  - Palpitations [Unknown]

NARRATIVE: CASE EVENT DATE: 20150624
